FAERS Safety Report 12364348 (Version 1)
Quarter: 2016Q2

REPORT INFORMATION
  Report Type: Spontaneous
  Country: FR (occurrence: FR)
  Receive Date: 20160513
  Receipt Date: 20160513
  Transmission Date: 20160815
  Serious: Yes (Disabling, Congenital Anomaly)
  Sender: FDA-Public Use
  Company Number: FR-CONCORDIA PHARMACEUTICALS INC.-CO-ZO-FR-2016-060

PATIENT
  Age: 0 Day
  Sex: Male

DRUGS (3)
  1. KEPPRA [Suspect]
     Active Substance: LEVETIRACETAM
     Route: 064
  2. ZONEGRAN [Suspect]
     Active Substance: ZONISAMIDE
     Route: 064
  3. URBANYL [Suspect]
     Active Substance: CLOBAZAM
     Route: 064

REACTIONS (5)
  - Foetal exposure during pregnancy [Not Recovered/Not Resolved]
  - Macrocephaly [Not Recovered/Not Resolved]
  - Motor developmental delay [Not Recovered/Not Resolved]
  - Dysmorphism [Not Recovered/Not Resolved]
  - Autism [Not Recovered/Not Resolved]

NARRATIVE: CASE EVENT DATE: 20150302
